FAERS Safety Report 19072556 (Version 1)
Quarter: 2021Q1

REPORT INFORMATION
  Report Type: Spontaneous
  Country: US (occurrence: US)
  Receive Date: 20210330
  Receipt Date: 20210330
  Transmission Date: 20210420
  Serious: No
  Sender: FDA-Public Use
  Company Number: NVSC2021US071708

PATIENT
  Sex: Male

DRUGS (1)
  1. VOTRIENT [Suspect]
     Active Substance: PAZOPANIB HYDROCHLORIDE
     Indication: LIPOSARCOMA METASTATIC
     Dosage: 800 MG, QD
     Route: 048
     Dates: start: 20210225, end: 20210322

REACTIONS (5)
  - Weight decreased [Unknown]
  - Blood pressure increased [Unknown]
  - Liver function test increased [Unknown]
  - Drug tolerance decreased [Unknown]
  - Diarrhoea [Unknown]
